FAERS Safety Report 19503674 (Version 1)
Quarter: 2021Q3

REPORT INFORMATION
  Report Type: Spontaneous
  Country: GB (occurrence: GB)
  Receive Date: 20210707
  Receipt Date: 20210707
  Transmission Date: 20211014
  Serious: Yes (Other)
  Sender: FDA-Public Use
  Company Number: GB-BAUSCH-BL-2021-022188

PATIENT
  Age: 70 Year
  Sex: Male

DRUGS (10)
  1. CIPROFLOXACIN. [Interacting]
     Active Substance: CIPROFLOXACIN
     Indication: PERIORBITAL CELLULITIS
     Route: 048
  2. MEROPENEM. [Interacting]
     Active Substance: MEROPENEM
     Indication: PERIORBITAL CELLULITIS
     Route: 042
  3. TEICOPLANIN [Interacting]
     Active Substance: TEICOPLANIN
     Indication: PERIORBITAL CELLULITIS
     Route: 030
  4. CLOPIDOGREL [Interacting]
     Active Substance: CLOPIDOGREL BISULFATE
     Indication: PRODUCT USED FOR UNKNOWN INDICATION
     Route: 065
  5. CLOPIDOGREL [Interacting]
     Active Substance: CLOPIDOGREL BISULFATE
     Dosage: FOLLOWED BY 75 MG DAILY
     Route: 065
  6. ASPIRIN. [Interacting]
     Active Substance: ASPIRIN
     Indication: PRODUCT USED FOR UNKNOWN INDICATION
     Dosage: ON ADMITTANCE
     Route: 065
  7. ERYTHROMYCIN. [Suspect]
     Active Substance: ERYTHROMYCIN
     Indication: PERIORBITAL CELLULITIS
     Route: 048
  8. ASPIRIN. [Interacting]
     Active Substance: ASPIRIN
     Dosage: FOLLOWED BY 75 MG DAILY
     Route: 065
  9. METRONIDAZOLE. [Interacting]
     Active Substance: METRONIDAZOLE
     Indication: PERIORBITAL CELLULITIS
     Route: 048
  10. WARFARIN [Interacting]
     Active Substance: WARFARIN
     Indication: PULMONARY EMBOLISM
     Route: 065

REACTIONS (4)
  - International normalised ratio increased [Recovered/Resolved]
  - Hyphaema [Unknown]
  - Drug interaction [Unknown]
  - Therapy non-responder [Unknown]
